FAERS Safety Report 21657478 (Version 1)
Quarter: 2022Q4

REPORT INFORMATION
  Report Type: Spontaneous
  Country: CA (occurrence: CA)
  Receive Date: 20221129
  Receipt Date: 20221129
  Transmission Date: 20230113
  Serious: Yes (Other)
  Sender: FDA-Public Use
  Company Number: CA-TEVA-2022-CA-2831433

PATIENT
  Age: 30 Year
  Sex: Male

DRUGS (23)
  1. CISPLATIN [Suspect]
     Active Substance: CISPLATIN
     Indication: Lymphoma AIDS related
     Dosage: THERAPY DURATION : 3.0 MONTHS
     Route: 065
  2. CISPLATIN [Suspect]
     Active Substance: CISPLATIN
     Indication: Epstein-Barr virus associated lymphoma
  3. DOXORUBICIN [Suspect]
     Active Substance: DOXORUBICIN
     Indication: Lymphoma AIDS related
     Dosage: THERAPY DURATION : 2.0 MONTHS
     Route: 065
  4. DOXORUBICIN [Suspect]
     Active Substance: DOXORUBICIN
     Indication: Epstein-Barr virus associated lymphoma
  5. ETOPOSIDE [Suspect]
     Active Substance: ETOPOSIDE
     Indication: Lymphoma AIDS related
     Dosage: THERAPY DURATION : 3.0 MONTHS
     Route: 065
  6. ETOPOSIDE [Suspect]
     Active Substance: ETOPOSIDE
     Indication: Epstein-Barr virus associated lymphoma
     Dosage: THERAPY DURATION : 2.0 MONTHS
     Route: 065
  7. PREDNISONE [Suspect]
     Active Substance: PREDNISONE
     Indication: Lymphoma AIDS related
     Dosage: THERAPY DURATION : 2.0 MONTHS
     Route: 065
  8. PREDNISONE [Suspect]
     Active Substance: PREDNISONE
     Indication: Epstein-Barr virus associated lymphoma
  9. VINCRISTINE [Suspect]
     Active Substance: VINCRISTINE
     Indication: Lymphoma AIDS related
     Dosage: THERAPY DURATION : 2.0 MONTHS
     Route: 065
  10. VINCRISTINE [Suspect]
     Active Substance: VINCRISTINE
     Indication: Epstein-Barr virus associated lymphoma
  11. CYCLOPHOSPHAMIDE [Suspect]
     Active Substance: CYCLOPHOSPHAMIDE
     Indication: Lymphoma AIDS related
     Dosage: THERAPY DURATION : 2.0 MONTHS
     Route: 065
  12. CYCLOPHOSPHAMIDE [Suspect]
     Active Substance: CYCLOPHOSPHAMIDE
     Indication: Epstein-Barr virus associated lymphoma
  13. CYTARABINE [Suspect]
     Active Substance: CYTARABINE
     Indication: Lymphoma AIDS related
     Dosage: THERAPY DURATION : 3.0 MONTHS
     Route: 065
  14. CYTARABINE [Suspect]
     Active Substance: CYTARABINE
     Indication: Epstein-Barr virus associated lymphoma
  15. DEXAMETHASONE [Suspect]
     Active Substance: DEXAMETHASONE
     Indication: Lymphoma AIDS related
     Dosage: THERAPY DURATION : 3.0 MONTHS
     Route: 065
  16. DEXAMETHASONE [Suspect]
     Active Substance: DEXAMETHASONE
     Indication: Epstein-Barr virus associated lymphoma
  17. IFOSFAMIDE [Suspect]
     Active Substance: IFOSFAMIDE
     Indication: Lymphoma AIDS related
     Dosage: THERAPY DURATION : 3.0 MONTHS
     Route: 065
  18. IFOSFAMIDE [Suspect]
     Active Substance: IFOSFAMIDE
     Indication: Epstein-Barr virus associated lymphoma
  19. RITUXIMAB [Suspect]
     Active Substance: RITUXIMAB
     Indication: Lymphoma AIDS related
     Dosage: THERAPY DURATION : 5.0 MONTHS
     Route: 065
  20. RITUXIMAB [Suspect]
     Active Substance: RITUXIMAB
     Indication: Epstein-Barr virus associated lymphoma
  21. EMTRICITABINE [Concomitant]
     Active Substance: EMTRICITABINE
     Indication: Antiretroviral therapy
  22. RALTEGRAVIR [Concomitant]
     Active Substance: RALTEGRAVIR
     Indication: Antiretroviral therapy
  23. TENOFOVIR [Concomitant]
     Active Substance: TENOFOVIR
     Indication: Antiretroviral therapy

REACTIONS (1)
  - Disease progression [Recovered/Resolved]
